FAERS Safety Report 15978438 (Version 2)
Quarter: 2019Q2

REPORT INFORMATION
  Report Type: Spontaneous
  Country: BR (occurrence: BR)
  Receive Date: 20190219
  Receipt Date: 20190529
  Transmission Date: 20190711
  Serious: No
  Sender: FDA-Public Use
  Company Number: BR-009507513-1902BRA005764

PATIENT
  Age: 30 Year
  Sex: Female
  Weight: 87 kg

DRUGS (2)
  1. IMPLANON [Suspect]
     Active Substance: ETONOGESTREL
     Indication: CONTRACEPTION
     Dosage: UNK
     Route: 059
     Dates: start: 20171204
  2. IMPLANON [Suspect]
     Active Substance: ETONOGESTREL
     Indication: MENSTRUAL CYCLE MANAGEMENT

REACTIONS (8)
  - Cholelithiasis [Recovered/Resolved]
  - Impatience [Recovered/Resolved]
  - General physical condition abnormal [Recovered/Resolved]
  - Mood altered [Recovered/Resolved]
  - Product use in unapproved indication [Unknown]
  - Oligomenorrhoea [Not Recovered/Not Resolved]
  - Depressed mood [Recovered/Resolved]
  - Irritability [Recovered/Resolved]

NARRATIVE: CASE EVENT DATE: 20171204
